FAERS Safety Report 12813289 (Version 1)
Quarter: 2016Q4

REPORT INFORMATION
  Report Type: Spontaneous
  Country: AU (occurrence: AU)
  Receive Date: 20161005
  Receipt Date: 20161005
  Transmission Date: 20170207
  Serious: Yes (Hospitalization, Other)
  Sender: FDA-Public Use
  Company Number: AU-SA-2016SA183019

PATIENT

DRUGS (9)
  1. ATORVASTATIN [Suspect]
     Active Substance: ATORVASTATIN
     Route: 065
  2. METFORMIN [Suspect]
     Active Substance: METFORMIN HYDROCHLORIDE
     Route: 065
  3. CEFACLOR. [Suspect]
     Active Substance: CEFACLOR
     Route: 065
  4. AMOXICILLIN (SALT NOT SPECIFIED) [Suspect]
     Active Substance: AMOXICILLIN
     Route: 065
  5. INDOMETACIN [Suspect]
     Active Substance: INDOMETHACIN
     Route: 065
  6. AMOXICILLIN/CLAVULANIC ACID [Suspect]
     Active Substance: AMOXICILLIN\CLAVULANIC ACID
     Route: 065
  7. GLIBENCLAMIDE [Suspect]
     Active Substance: GLYBURIDE
     Route: 065
  8. RAMIPRIL. [Suspect]
     Active Substance: RAMIPRIL
     Indication: PRODUCT USED FOR UNKNOWN INDICATION
     Route: 048
  9. ACETYLSALICYLIC ACID [Suspect]
     Active Substance: ASPIRIN
     Route: 065

REACTIONS (1)
  - Drug-induced liver injury [Unknown]
